FAERS Safety Report 6265496-1 (Version None)
Quarter: 2009Q3

REPORT INFORMATION
  Report Type: 
  Country: None (occurrence: None)
  Receive Date: 20090713
  Receipt Date: 20090629
  Transmission Date: 20100115
  Serious: Yes (Other)
  Sender: FDA-Public Use
  Company Number: PHHY2009ES27270

PATIENT
  Age: 49 Year
  Sex: Male

DRUGS (1)
  1. VALSARTAN [Suspect]
     Indication: HYPERTENSION
     Dosage: 160 MG PER DAY

REACTIONS (6)
  - ARTHRITIS [None]
  - COUGH [None]
  - HILAR LYMPHADENOPATHY [None]
  - RASH MACULAR [None]
  - SARCOIDOSIS [None]
  - SKIN PLAQUE [None]
